FAERS Safety Report 5145800-8 (Version None)
Quarter: 2006Q4

REPORT INFORMATION
  Report Type: 
  Country: None (occurrence: None)
  Receive Date: 20061108
  Receipt Date: 20061030
  Transmission Date: 20070319
  Serious: Yes (Other)
  Sender: FDA-Public Use
  Company Number: SE-JNJFOC-20061007016

PATIENT
  Age: 71 Year
  Sex: Female

DRUGS (6)
  1. REMICADE [Suspect]
     Indication: RHEUMATOID ARTHRITIS
     Route: 042
  2. METHOTREXATE [Concomitant]
     Route: 065
  3. FEMANOR [Concomitant]
     Route: 065
  4. ORUDIS RETARD [Concomitant]
     Route: 065
  5. FOLACIN [Concomitant]
     Route: 065
  6. DEXOFEN [Concomitant]

REACTIONS (1)
  - BREAST CANCER [None]
